FAERS Safety Report 4876864-4 (Version None)
Quarter: 2006Q1

REPORT INFORMATION
  Report Type: 
  Country: None (occurrence: None)
  Receive Date: 20060109
  Receipt Date: 20060109
  Transmission Date: 20060701
  Serious: Yes (Life-Threatening, Hospitalization)
  Sender: FDA-Public Use
  Company Number: None

PATIENT
  Age: 62 Year
  Sex: Female
  Weight: 97.1 kg

DRUGS (2)
  1. ANGIOMAX [Suspect]
     Indication: ANGIOPLASTY
     Dosage: 13.5  IV BOLUS
     Route: 040
     Dates: start: 20051125, end: 20051125
  2. ANGIOMAX [Suspect]
     Indication: ANGIOPLASTY
     Dosage: 31.5 IV DRIP
     Route: 041
     Dates: start: 20051125, end: 20051125

REACTIONS (1)
  - NO ADVERSE EFFECT [None]
